FAERS Safety Report 9804555 (Version 1)
Quarter: 2014Q1

REPORT INFORMATION
  Report Type: Spontaneous
  Country: US (occurrence: US)
  Receive Date: 20140108
  Receipt Date: 20140108
  Transmission Date: 20141002
  Serious: Yes (Hospitalization, Other)
  Sender: FDA-Public Use
  Company Number: US-ELI_LILLY_AND_COMPANY-US201312009080

PATIENT
  Age: 58 Year
  Sex: Female

DRUGS (5)
  1. HUMALOG LISPRO [Suspect]
     Indication: TYPE 2 DIABETES MELLITUS
     Dosage: UNK
     Route: 065
     Dates: start: 2003, end: 201312
  2. METFORMIN [Concomitant]
     Dosage: UNK
  3. ATENOLOL [Concomitant]
     Dosage: UNK
  4. LISINOPRIL [Concomitant]
     Dosage: UNK
  5. EFFEXOR [Concomitant]
     Dosage: UNK

REACTIONS (2)
  - Blood glucose increased [Recovering/Resolving]
  - Drug dose omission [Unknown]
